FAERS Safety Report 8242558-0 (Version None)
Quarter: 2012Q1

REPORT INFORMATION
  Report Type: 
  Country: None (occurrence: None)
  Receive Date: 20120329
  Receipt Date: 20120326
  Transmission Date: 20120608
  Serious: Yes (Death)
  Sender: FDA-Public Use
  Company Number: PHHY2012BR016871

PATIENT
  Sex: Female

DRUGS (11)
  1. EXELON [Suspect]
     Indication: DEMENTIA ALZHEIMER'S TYPE
     Dosage: 4.6 MG/ 24HRS
     Route: 062
  2. DABIGATRAN ETEXILATE [Concomitant]
     Indication: COAGULOPATHY
     Dosage: UNK UKN, UNK
  3. FUROSEMIDE [Concomitant]
     Dosage: UNK UKN, UNK
  4. FENFLURAMINE HYDROCHLORIDE [Concomitant]
     Dosage: UNK UKN, UNK
  5. ATORVASTATIN [Concomitant]
     Indication: BLOOD CHOLESTEROL INCREASED
     Dosage: UNK UKN, UNK
  6. SEROQUEL [Concomitant]
     Indication: MENTAL DISORDER
     Dosage: UNK UKN, UNK
  7. SOMALGIN [Concomitant]
     Dosage: UNK UKN, UNK
  8. PANTOGAR [Concomitant]
     Dosage: UNK UKN, UNK
  9. PANTOPRAZOLE [Concomitant]
     Dosage: UNK UKN, UNK
  10. MULTI-VITAMIN [Concomitant]
     Dosage: UNK UKN, UNK
  11. ESPIRONOLACTONA [Concomitant]
     Dosage: UNK UKN, UNK

REACTIONS (2)
  - ARTERIOSCLEROSIS CORONARY ARTERY [None]
  - INFARCTION [None]
